FAERS Safety Report 4389128-2 (Version None)
Quarter: 2004Q3

REPORT INFORMATION
  Report Type: 
  Country: None (occurrence: None)
  Receive Date: 20040701
  Receipt Date: 20040701
  Transmission Date: 20050211
  Serious: Yes (Life-Threatening, Hospitalization)
  Sender: FDA-Public Use
  Company Number: None

PATIENT
  Sex: Male
  Weight: 70 kg

DRUGS (3)
  1. HEPARIN [Suspect]
     Indication: DIAGNOSTIC PROCEDURE
     Dosage: 5000 U SQ BID
     Route: 058
  2. HEPARIN [Suspect]
     Indication: PROPHYLAXIS
     Dosage: 5000 U SQ BID
     Route: 058
  3. HEPARIN [Suspect]
     Indication: PULMONARY EMBOLISM
     Dosage: 5000 U SQ BID
     Route: 058

REACTIONS (4)
  - ANTIBODY TEST POSITIVE [None]
  - HEPARIN-INDUCED THROMBOCYTOPENIA TEST [None]
  - PULMONARY EMBOLISM [None]
  - THROMBOCYTOPENIA [None]
